FAERS Safety Report 7332335-7 (Version None)
Quarter: 2011Q1

REPORT INFORMATION
  Report Type: 
  Country: None (occurrence: None)
  Receive Date: 20110304
  Receipt Date: 20110224
  Transmission Date: 20110831
  Serious: Yes (Death, Hospitalization)
  Sender: FDA-Public Use
  Company Number: A0886885A

PATIENT
  Sex: Male

DRUGS (1)
  1. AVANDIA [Suspect]
     Indication: DIABETES MELLITUS
     Dosage: 4MG PER DAY
     Route: 048
     Dates: start: 20090312, end: 20100318

REACTIONS (6)
  - IMPLANTABLE DEFIBRILLATOR INSERTION [None]
  - DEATH [None]
  - CARDIAC DISORDER [None]
  - RENAL DISORDER [None]
  - VASCULAR GRAFT [None]
  - CARDIAC PACEMAKER INSERTION [None]
